FAERS Safety Report 5695486-9 (Version None)
Quarter: 2008Q2

REPORT INFORMATION
  Report Type: 
  Country: None (occurrence: None)
  Receive Date: 20080407
  Receipt Date: 20080327
  Transmission Date: 20081010
  Serious: Yes (Other)
  Sender: FDA-Public Use
  Company Number: GB-RANBAXY-2008RR-14081

PATIENT

DRUGS (1)
  1. CO-AMOXICLAV 250/125 MG TABLETS [Suspect]
     Indication: EAR INFECTION

REACTIONS (4)
  - EAR PAIN [None]
  - HEADACHE [None]
  - HYPERHIDROSIS [None]
  - PHARYNGEAL OEDEMA [None]
